FAERS Safety Report 6653897-9 (Version None)
Quarter: 2010Q1

REPORT INFORMATION
  Report Type: 
  Country: None (occurrence: None)
  Receive Date: 20100324
  Receipt Date: 20100316
  Transmission Date: 20100710
  Serious: No
  Sender: FDA-Public Use
  Company Number: 2009SP041779

PATIENT
  Age: 46 Year
  Sex: Female

DRUGS (10)
  1. IMPLANON [Suspect]
     Indication: DRUG USE FOR UNKNOWN INDICATION
     Dosage: 1 DF; SC, 1 DF:SC
     Route: 058
     Dates: start: 20030901, end: 20060810
  2. IMPLANON [Suspect]
     Indication: DRUG USE FOR UNKNOWN INDICATION
     Dosage: 1 DF; SC, 1 DF:SC
     Route: 058
     Dates: start: 20060810
  3. IMPLANON [Suspect]
  4. MIRENA [Suspect]
     Indication: CONTRACEPTION
     Dates: start: 20090924, end: 20091029
  5. NYPNOVEL [Concomitant]
  6. SUFENTANYL [Concomitant]
  7. DIPRIVAN [Concomitant]
  8. TRACRIUM [Concomitant]
  9. EPHEDRINE [Concomitant]
  10. CEFAZOLIN [Concomitant]

REACTIONS (5)
  - AMENORRHOEA [None]
  - ANAPHYLACTIC SHOCK [None]
  - ANAPHYLACTOID REACTION [None]
  - DEVICE DISLOCATION [None]
  - MEDICAL DEVICE COMPLICATION [None]
